FAERS Safety Report 7919980-2 (Version None)
Quarter: 2011Q4

REPORT INFORMATION
  Report Type: 
  Country: None (occurrence: None)
  Receive Date: 20111117
  Receipt Date: 20111109
  Transmission Date: 20120403
  Serious: Yes (Hospitalization, Other)
  Sender: FDA-Public Use
  Company Number: FR-PFIZER INC-K201101225

PATIENT
  Sex: Female

DRUGS (10)
  1. POTASSIUM CHLORIDE [Suspect]
     Indication: HYPERTENSION
     Dosage: 600 MG, DAILY
     Route: 048
     Dates: start: 20110330, end: 20110421
  2. ISOSORBIDE MONONITRATE [Concomitant]
     Dosage: 40MG, UNK
     Route: 048
  3. LEXOTAN [Concomitant]
     Dosage: UNK
  4. RAMIPRIL [Suspect]
     Dosage: 5 MG, DAILY
     Route: 048
     Dates: start: 20060101, end: 20110421
  5. LASIX [Concomitant]
     Dosage: 25 MG, UNK
  6. AMLODIPINE [Concomitant]
     Dosage: 10 MG, UNK
     Route: 048
  7. ASPIRIN [Concomitant]
     Dosage: UNK
  8. ESOMEPRAZOLE [Concomitant]
     Dosage: 40 MG, UNK
     Route: 048
  9. ALDACTONE [Suspect]
     Indication: HYPERTENSION
     Dosage: 25 MG, DAILY
     Route: 048
     Dates: start: 20110330, end: 20110421
  10. ZOLPIDEM TARTRATE [Concomitant]
     Dosage: UNK

REACTIONS (3)
  - ACUTE PULMONARY OEDEMA [None]
  - SUPRAVENTRICULAR EXTRASYSTOLES [None]
  - HYPERKALAEMIA [None]
